FAERS Safety Report 4748497-1 (Version None)
Quarter: 2005Q3

REPORT INFORMATION
  Report Type: 
  Country: None (occurrence: None)
  Receive Date: 20050817
  Receipt Date: 20050808
  Transmission Date: 20060218
  Serious: Yes (Other)
  Sender: FDA-Public Use
  Company Number: 2005109403

PATIENT
  Age: 54 Year
  Sex: Female
  Weight: 108.8633 kg

DRUGS (7)
  1. CELEBREX [Suspect]
     Indication: ARTHRALGIA
     Dosage: SEE IMAGE
     Dates: start: 20041201
  2. CELEBREX [Suspect]
     Indication: INFLAMMATION
     Dosage: SEE IMAGE
     Dates: start: 20041201
  3. CELEBREX [Suspect]
     Indication: SWELLING
     Dosage: SEE IMAGE
     Dates: start: 20041201
  4. AMBIEN [Concomitant]
  5. CELEXA [Concomitant]
  6. WELLBUTRIN [Concomitant]
  7. ANTACIDS (ANTACIDS) [Concomitant]

REACTIONS (5)
  - ARTHROPATHY [None]
  - INCREASED TENDENCY TO BRUISE [None]
  - INSOMNIA [None]
  - MENISCUS LESION [None]
  - PRURITUS [None]
